FAERS Safety Report 15790201 (Version 1)
Quarter: 2019Q1

REPORT INFORMATION
  Report Type: Spontaneous
  Country: US (occurrence: US)
  Receive Date: 20190104
  Receipt Date: 20190104
  Transmission Date: 20190417
  Serious: No
  Sender: FDA-Public Use
  Company Number: US-SA-2019SA001799

PATIENT
  Sex: Female

DRUGS (1)
  1. DUPIXENT [Suspect]
     Active Substance: DUPILUMAB
     Indication: DERMATITIS ATOPIC
     Dosage: TWICE WEEKLY
     Route: 058
     Dates: start: 20181030

REACTIONS (3)
  - Product use issue [Unknown]
  - Eye pruritus [Unknown]
  - Ocular hyperaemia [Unknown]
